FAERS Safety Report 24647462 (Version 1)
Quarter: 2024Q4

REPORT INFORMATION
  Report Type: Spontaneous
  Country: MX (occurrence: MX)
  Receive Date: 20241121
  Receipt Date: 20241121
  Transmission Date: 20250115
  Serious: Yes (Other)
  Sender: AMGEN
  Company Number: MX-AMGEN-MEXSP2024225413

PATIENT
  Age: 21 Year
  Sex: Female

DRUGS (4)
  1. PEGFILGRASTIM [Suspect]
     Active Substance: PEGFILGRASTIM
     Indication: Prophylaxis
     Dosage: 6 MILLIGRAM, AFTER CHEMO
     Route: 065
     Dates: start: 202208, end: 202301
  2. DOXORUBICIN [Concomitant]
     Active Substance: DOXORUBICIN
     Indication: Osteosarcoma
     Dosage: 110 MILLIGRAM, IN 100 CC OF 0.9% SALINE SOLUTION
     Route: 065
     Dates: start: 202208, end: 202301
  3. SODIUM CHLORIDE [Concomitant]
     Active Substance: SODIUM CHLORIDE
     Indication: Osteosarcoma
     Dosage: UNK, DOXORUBICIN AT 110 MG IN 100 CC OF 0.9% SALINE SOLUTION AND CISPLATIN AT 140 MG IN 1,000 CC OF
     Route: 065
     Dates: start: 202208, end: 202301
  4. CISPLATIN [Concomitant]
     Active Substance: CISPLATIN
     Indication: Osteosarcoma
     Dosage: 140 MILLIGRAM, 140 MG IN 1,000 CC OF 0.9% SALINE SOLUTION
     Route: 065
     Dates: start: 202208, end: 202301

REACTIONS (2)
  - Myelosuppression [Unknown]
  - Maternal exposure during pregnancy [Recovered/Resolved]
